FAERS Safety Report 24463139 (Version 1)
Quarter: 2024Q4

REPORT INFORMATION
  Report Type: Report from Study
  Country: US (occurrence: US)
  Receive Date: 20241018
  Receipt Date: 20241018
  Transmission Date: 20250114
  Serious: No
  Sender: ROCHE
  Company Number: US-ROCHE-2777326

PATIENT
  Age: 34 Year
  Sex: Female
  Weight: 65.32 kg

DRUGS (14)
  1. XOLAIR [Suspect]
     Active Substance: OMALIZUMAB
     Indication: Idiopathic urticaria
     Route: 058
     Dates: start: 2018, end: 2019
  2. XOLAIR [Suspect]
     Active Substance: OMALIZUMAB
     Indication: Urticaria
     Route: 058
     Dates: start: 2019, end: 202012
  3. PREDNISONE [Concomitant]
     Active Substance: PREDNISONE
     Indication: Urticaria
     Dosage: 50 MG FOR 3 DAYS, 40 MG FOR 3 DAYS, 30 MG FOR 5 DAYS, 20 MG FOR 7 DAYS AND THEN 10 MG FOR 10 DAYS
     Route: 065
  4. CETIRIZINE [Concomitant]
     Active Substance: CETIRIZINE HYDROCHLORIDE
  5. FAMOTIDINE [Concomitant]
     Active Substance: FAMOTIDINE
     Indication: Urticaria
     Route: 048
  6. FAMOTIDINE [Concomitant]
     Active Substance: FAMOTIDINE
     Indication: Hypersensitivity
  7. SINGULAIR [Concomitant]
     Active Substance: MONTELUKAST SODIUM
  8. HYDROXYZINE [Concomitant]
     Active Substance: HYDROXYZINE HYDROCHLORIDE
     Dosage: 25-50 MG NIGHTLY
  9. CITALOPRAM [Concomitant]
     Active Substance: CITALOPRAM
     Indication: Depression
     Dosage: AT BEDTIME
     Route: 048
  10. OMEPRAZOLE [Concomitant]
     Active Substance: OMEPRAZOLE
     Indication: Gastrooesophageal reflux disease
     Route: 048
  11. HYDROXYZINE [Concomitant]
     Active Substance: HYDROXYZINE HYDROCHLORIDE
     Indication: Urticaria
     Route: 048
     Dates: start: 2022
  12. HYDROXYZINE [Concomitant]
     Active Substance: HYDROXYZINE HYDROCHLORIDE
     Indication: Anxiety
  13. ATIVAN [Concomitant]
     Active Substance: LORAZEPAM
     Indication: Panic attack
     Route: 048
     Dates: start: 2022
  14. EPIPEN [Concomitant]
     Active Substance: EPINEPHRINE
     Indication: Urticaria
     Route: 030
     Dates: start: 20220120

REACTIONS (2)
  - Urticaria [Not Recovered/Not Resolved]
  - Urticaria [Recovered/Resolved]

NARRATIVE: CASE EVENT DATE: 20231201
